FAERS Safety Report 7438146-6 (Version None)
Quarter: 2011Q2

REPORT INFORMATION
  Report Type: 
  Country: None (occurrence: None)
  Receive Date: 20110426
  Receipt Date: 20110404
  Transmission Date: 20111010
  Serious: No
  Sender: FDA-Public Use
  Company Number: US-B.I. PHARMACEUTICALS,INC./RIDGEFIELD-2011-BP-09970BP

PATIENT
  Sex: Female

DRUGS (10)
  1. NASONEX [Concomitant]
     Route: 055
     Dates: end: 20110402
  2. TYLENOL OTC [Concomitant]
     Indication: ARTHRITIS
     Route: 048
  3. DEXTRAL [Concomitant]
     Indication: BLADDER DISORDER
     Dosage: 4 MG
     Route: 048
  4. VYTORIN [Concomitant]
     Route: 048
  5. RECLAST [Concomitant]
     Indication: OSTEOPOROSIS
     Route: 048
  6. LASIX [Concomitant]
     Indication: CARDIAC DISORDER
     Dosage: 20 MG
     Route: 048
  7. SPIRIVA [Suspect]
     Indication: LUNG DISORDER
     Dosage: 18 MCG
     Route: 055
  8. ASPIRIN [Concomitant]
     Indication: CARDIAC DISORDER
     Dosage: 81 MG
     Route: 048
  9. METOPROLOL [Concomitant]
     Indication: HYPERTENSION
     Route: 048
  10. NEXIUM [Concomitant]
     Indication: ABDOMINAL DISCOMFORT
     Dosage: 40 MG
     Route: 048

REACTIONS (4)
  - EPISTAXIS [None]
  - CONSTIPATION [None]
  - DRY MOUTH [None]
  - RHINORRHOEA [None]
